FAERS Safety Report 5196296-1 (Version None)
Quarter: 2006Q4

REPORT INFORMATION
  Report Type: 
  Country: None (occurrence: None)
  Receive Date: 20061222
  Receipt Date: 20061208
  Transmission Date: 20070319
  Serious: Yes (Other)
  Sender: FDA-Public Use
  Company Number: 2006152124

PATIENT
  Age: 81 Year
  Sex: Male

DRUGS (2)
  1. NORVASC [Suspect]
     Indication: HYPERTENSION
     Dosage: 5 MG (5 MG, 1 IN 24 HR), ORAL; 10 MG (5 MG,2 IN 24 HR), ORAL
     Route: 048
     Dates: start: 19990901, end: 19990927
  2. NORVASC [Suspect]
     Indication: HYPERTENSION
     Dosage: 5 MG (5 MG, 1 IN 24 HR), ORAL; 10 MG (5 MG,2 IN 24 HR), ORAL
     Route: 048
     Dates: start: 19990928, end: 19991005

REACTIONS (12)
  - ASCITES [None]
  - CONJUNCTIVAL OEDEMA [None]
  - DECREASED APPETITE [None]
  - DYSPNOEA EXERTIONAL [None]
  - EYELID OEDEMA [None]
  - FACE OEDEMA [None]
  - HYDROTHORAX [None]
  - INDIFFERENCE [None]
  - OEDEMA GENITAL [None]
  - OEDEMA PERIPHERAL [None]
  - PALPITATIONS [None]
  - SCROTAL OEDEMA [None]
